FAERS Safety Report 7296538-2 (Version None)
Quarter: 2011Q1

REPORT INFORMATION
  Report Type: 
  Country: None (occurrence: None)
  Receive Date: 20110216
  Receipt Date: 20110204
  Transmission Date: 20110831
  Serious: Yes (Hospitalization)
  Sender: FDA-Public Use
  Company Number: PHHY2010NL86442

PATIENT
  Sex: Male

DRUGS (3)
  1. ZOMETA [Suspect]
     Indication: PROSTATE CANCER METASTATIC
     Dosage: 4MG PER 28 DAYS
     Dates: start: 20090114
  2. ZOMETA [Suspect]
     Dosage: 4MG PER 28 DAYS
     Dates: start: 20101122
  3. ZOMETA [Suspect]
     Dosage: 4 MG PER 28 DAYS
     Dates: start: 20101220, end: 20101220

REACTIONS (4)
  - HAEMORRHAGE [None]
  - BLOOD URINE PRESENT [None]
  - URINARY RETENTION [None]
  - METASTASES TO KIDNEY [None]
